FAERS Safety Report 10262072 (Version 1)
Quarter: 2014Q2

REPORT INFORMATION
  Report Type: Spontaneous
  Country: US (occurrence: US)
  Receive Date: 20140626
  Receipt Date: 20140626
  Transmission Date: 20141212
  Serious: Yes (Other)
  Sender: FDA-Public Use
  Company Number: US-AMGEN-USASP2014047160

PATIENT
  Age: 62 Year
  Sex: Female

DRUGS (1)
  1. ENBREL [Suspect]
     Indication: RHEUMATOID ARTHRITIS
     Dosage: UNK
     Route: 065
     Dates: start: 201403

REACTIONS (4)
  - Traumatic lung injury [Unknown]
  - Pulmonary fibrosis [Unknown]
  - Interstitial lung disease [Unknown]
  - Lower respiratory tract inflammation [Unknown]
